FAERS Safety Report 4591486-0 (Version None)
Quarter: 2005Q1

REPORT INFORMATION
  Report Type: 
  Country: None (occurrence: None)
  Receive Date: 20050222
  Receipt Date: 20050208
  Transmission Date: 20050727
  Serious: Yes (Death, Life-Threatening, Hospitalization)
  Sender: FDA-Public Use
  Company Number: 2004100128

PATIENT
  Age: 70 Year
  Sex: Male
  Weight: 47 kg

DRUGS (4)
  1. IRINOTECAN HCL [Suspect]
     Indication: GASTRIC CANCER
     Dosage: 50 MG/M2 (CYCLIC), INTRAVENOUS
     Route: 042
     Dates: start: 20040820, end: 20041101
  2. PACLITAXEL [Suspect]
     Indication: GASTRIC CANCER
     Dosage: 50 MG/M2 (CYCLIC), INTRAVENOUS
     Route: 042
     Dates: start: 20040820, end: 20041101
  3. DEXAMETHASONE SODIUM PHOSPHATE [Suspect]
     Indication: GASTRIC CANCER
     Dosage: 20 MG 9CYCLIC), INTRAVENOUS
     Route: 042
     Dates: start: 20040820, end: 20041101
  4. PREDNISONE [Suspect]
     Indication: DECREASED APPETITE
     Dosage: 16 MG (DAILY), ORAL
     Route: 048
     Dates: start: 20040913, end: 20041101

REACTIONS (8)
  - ANOREXIA [None]
  - C-REACTIVE PROTEIN INCREASED [None]
  - CANDIDA SEROLOGY POSITIVE [None]
  - DISSEMINATED INTRAVASCULAR COAGULATION [None]
  - PULMONARY FIBROSIS [None]
  - PYREXIA [None]
  - RESPIRATORY FAILURE [None]
  - RESPIRATORY MONILIASIS [None]
